FAERS Safety Report 9718583 (Version 2)
Quarter: 2013Q4

REPORT INFORMATION
  Report Type: Spontaneous
  Country: US (occurrence: US)
  Receive Date: 20131127
  Receipt Date: 20131218
  Transmission Date: 20140711
  Serious: Yes (Other)
  Sender: FDA-Public Use
  Company Number: US-TARO-2013P1021258

PATIENT
  Age: 44 Year
  Sex: Female
  Weight: 61.24 kg

DRUGS (15)
  1. LAMOTRIGINE TABLETS 100 MG [Suspect]
     Indication: CONVULSION
     Route: 048
     Dates: start: 2008, end: 2011
  2. LAMOTRIGINE TABLETS 100 MG [Suspect]
     Route: 048
     Dates: start: 2008, end: 2011
  3. LAMOTRIGINE TABLETS 100 MG [Suspect]
     Indication: CONVULSION
     Route: 048
     Dates: start: 2011
  4. LAMOTRIGINE TABLETS 100 MG [Suspect]
     Route: 048
     Dates: start: 2011
  5. LAMOTRIGINE TABLETS 100 MG [Suspect]
     Indication: CONVULSION
     Route: 048
     Dates: start: 20130819, end: 20130819
  6. LAMOTRIGINE TABLETS 100 MG [Suspect]
     Route: 048
     Dates: start: 20130819, end: 20130819
  7. LAMOTRIGINE TABLETS 100 MG [Suspect]
     Indication: CONVULSION
     Route: 048
     Dates: start: 20130820, end: 20130820
  8. LAMOTRIGINE TABLETS 100 MG [Suspect]
     Route: 048
     Dates: start: 20130820, end: 20130820
  9. LAMOTRIGINE TABLETS 100 MG [Suspect]
     Indication: CONVULSION
     Route: 048
     Dates: start: 20130823, end: 20130823
  10. LAMOTRIGINE TABLETS 100 MG [Suspect]
     Route: 048
     Dates: start: 20130823, end: 20130823
  11. LAMOTRIGINE TABLETS 100 MG [Suspect]
     Indication: CONVULSION
     Route: 048
     Dates: start: 20130824, end: 20130824
  12. LAMOTRIGINE TABLETS 100 MG [Suspect]
     Route: 048
     Dates: start: 20130824, end: 20130824
  13. ABILIFY [Suspect]
  14. CRESTOR [Concomitant]
  15. PERCOCET [Concomitant]

REACTIONS (16)
  - Drug ineffective [Not Recovered/Not Resolved]
  - Vertigo [Recovered/Resolved]
  - Convulsion [Recovered/Resolved]
  - Fumbling [Recovered/Resolved]
  - Insomnia [Recovered/Resolved]
  - Product quality issue [Unknown]
  - Ataxia [Unknown]
  - Gliosis [Unknown]
  - Visual impairment [Unknown]
  - Abdominal discomfort [Unknown]
  - Hypoaesthesia [Recovered/Resolved]
  - Headache [Recovered/Resolved]
  - Glaucoma [Unknown]
  - Temporal arteritis [Unknown]
  - Retinal artery occlusion [Unknown]
  - Retinal vein occlusion [Unknown]
